FAERS Safety Report 22591060 (Version 1)
Quarter: 2023Q2

REPORT INFORMATION
  Report Type: Spontaneous
  Country: US (occurrence: None)
  Receive Date: 20230611
  Receipt Date: 20230611
  Transmission Date: 20230722
  Serious: Yes (Hospitalization, Other)
  Sender: FDA-Public Use
  Company Number: None

PATIENT
  Age: 37 Year
  Sex: Male
  Weight: 78.75 kg

DRUGS (7)
  1. OXYCODONE [Suspect]
     Active Substance: OXYCODONE
     Indication: Arthralgia
     Dosage: OTHER QUANTITY : 2 CAPSULE(S);?FREQUENCY : EVERY 6 HOURS;?
     Route: 048
     Dates: start: 2023, end: 20230611
  2. Maloxican [Concomitant]
  3. TYLENOL [Concomitant]
     Active Substance: ACETAMINOPHEN
  4. ASPIRIN [Concomitant]
     Active Substance: ASPIRIN
  5. merhocarbomol [Concomitant]
  6. TRAZODONE [Concomitant]
     Active Substance: TRAZODONE HYDROCHLORIDE
  7. tomazipam [Concomitant]

REACTIONS (9)
  - Product use issue [None]
  - Pain [None]
  - Fall [None]
  - Gait disturbance [None]
  - Mobility decreased [None]
  - Bedridden [None]
  - Loss of personal independence in daily activities [None]
  - Sleep disorder [None]
  - Suicidal ideation [None]

NARRATIVE: CASE EVENT DATE: 20230408
